FAERS Safety Report 4369288-X (Version None)
Quarter: 2004Q2

REPORT INFORMATION
  Report Type: 
  Country: None (occurrence: None)
  Receive Date: 20040527
  Receipt Date: 20040524
  Transmission Date: 20050107
  Serious: Yes (Death)
  Sender: FDA-Public Use
  Company Number: 2004-114235-NL

PATIENT
  Age: 23 Year
  Sex: Female

DRUGS (4)
  1. DESOGESTREL AND ETHINYL ESTRADIOL [Suspect]
     Indication: CONTRACEPTION
     Dosage: DF ORAL
     Route: 048
     Dates: start: 20030813
  2. ERYTHROMYCIN [Concomitant]
  3. TRIMETHOPRIM [Concomitant]
  4. AMOXICILLIN AND CLAVULANATE POTASSIUM [Concomitant]

REACTIONS (1)
  - PULMONARY EMBOLISM [None]
